FAERS Safety Report 7871212-X (Version None)
Quarter: 2011Q4

REPORT INFORMATION
  Report Type: 
  Country: None (occurrence: None)
  Receive Date: 20111029
  Receipt Date: 20110228
  Transmission Date: 20120403
  Serious: No
  Sender: FDA-Public Use
  Company Number: US-AMGEN-USASP2011011247

PATIENT
  Age: 17 Year
  Sex: Female

DRUGS (2)
  1. ENBREL [Suspect]
     Indication: JUVENILE ARTHRITIS
     Dosage: 25 MG, 2 TIMES/WK
     Dates: start: 20110104
  2. ENBREL [Suspect]
     Indication: ANKYLOSING SPONDYLITIS

REACTIONS (2)
  - GASTROENTERITIS VIRAL [None]
  - ABDOMINAL PAIN UPPER [None]
